FAERS Safety Report 7008803-4 (Version None)
Quarter: 2010Q3

REPORT INFORMATION
  Report Type: 
  Country: None (occurrence: None)
  Receive Date: 20100922
  Receipt Date: 20100811
  Transmission Date: 20110219
  Serious: Yes (Death, Life-Threatening, Other)
  Sender: FDA-Public Use
  Company Number: US-BAXTER-2009BH016538

PATIENT
  Age: 62 Year
  Sex: Male

DRUGS (22)
  1. HEPARIN SODIUM INJECTION [Suspect]
     Indication: CORONARY ARTERY BYPASS
     Route: 042
     Dates: start: 20070904, end: 20070904
  2. HEPARIN SODIUM INJECTION [Suspect]
     Indication: MYOCARDIAL INFARCTION
     Route: 042
     Dates: start: 20070904, end: 20070904
  3. HEPARIN SODIUM INJECTION [Suspect]
     Indication: CATHETERISATION CARDIAC
     Route: 042
     Dates: start: 20070904, end: 20070904
  4. HEPARIN SODIUM INJECTION [Suspect]
     Route: 013
     Dates: start: 20070904, end: 20070904
  5. HEPARIN SODIUM INJECTION [Suspect]
     Route: 013
     Dates: start: 20070904, end: 20070904
  6. HEPARIN SODIUM INJECTION [Suspect]
     Route: 013
     Dates: start: 20070904, end: 20070904
  7. HEPARIN SODIUM INJECTION [Suspect]
     Route: 042
     Dates: start: 20070904, end: 20070904
  8. HEPARIN SODIUM INJECTION [Suspect]
     Route: 042
     Dates: start: 20070904, end: 20070904
  9. HEPARIN SODIUM INJECTION [Suspect]
     Route: 042
     Dates: start: 20070904, end: 20070904
  10. HEPARIN SODIUM INJECTION [Suspect]
     Route: 042
     Dates: start: 20070904, end: 20070904
  11. HEPARIN SODIUM INJECTION [Suspect]
     Route: 042
     Dates: start: 20070904, end: 20070904
  12. HEPARIN SODIUM INJECTION [Suspect]
     Route: 042
     Dates: start: 20070904, end: 20070904
  13. HEPARIN SODIUM INJECTION [Suspect]
     Route: 042
     Dates: start: 20070904, end: 20070904
  14. HEPARIN SODIUM INJECTION [Suspect]
     Route: 042
     Dates: start: 20070904, end: 20070904
  15. HEPARIN SODIUM INJECTION [Suspect]
     Route: 042
     Dates: start: 20070904, end: 20070904
  16. HEPARIN SODIUM INJECTION [Suspect]
     Route: 042
     Dates: start: 20070904, end: 20070904
  17. HEPARIN SODIUM INJECTION [Suspect]
     Route: 042
     Dates: start: 20070904, end: 20070904
  18. HEPARIN SODIUM INJECTION [Suspect]
     Route: 042
     Dates: start: 20070904, end: 20070904
  19. HEPARIN SODIUM 10,000 UNITS IN SODIUM CHLORIDE 0.45% [Suspect]
     Indication: PROPHYLAXIS
     Route: 041
     Dates: start: 20070911, end: 20070912
  20. LOPRESSOR [Concomitant]
     Indication: PRODUCT USED FOR UNKNOWN INDICATION
     Route: 065
     Dates: start: 20070904, end: 20070904
  21. ASPIRIN [Concomitant]
     Indication: PRODUCT USED FOR UNKNOWN INDICATION
     Route: 065
     Dates: start: 20070904, end: 20070904
  22. NOTROXL [Concomitant]
     Indication: PRODUCT USED FOR UNKNOWN INDICATION
     Route: 065
     Dates: start: 20070904, end: 20070904

REACTIONS (13)
  - ATRIAL FLUTTER [None]
  - BLOOD PRESSURE DECREASED [None]
  - CARDIO-RESPIRATORY ARREST [None]
  - CIRCULATORY COLLAPSE [None]
  - GANGRENE [None]
  - HEPARIN-INDUCED THROMBOCYTOPENIA [None]
  - INTESTINAL ISCHAEMIA [None]
  - MULTI-ORGAN FAILURE [None]
  - PERIPHERAL ISCHAEMIA [None]
  - PLEURAL EFFUSION [None]
  - PNEUMATOSIS [None]
  - SUPRAVENTRICULAR TACHYCARDIA [None]
  - VENTRICULAR EXTRASYSTOLES [None]
